FAERS Safety Report 22051657 (Version 1)
Quarter: 2023Q1

REPORT INFORMATION
  Report Type: Spontaneous
  Country: US (occurrence: US)
  Receive Date: 20230302
  Receipt Date: 20230302
  Transmission Date: 20230418
  Serious: Yes (Death, Other)
  Sender: FDA-Public Use
  Company Number: US-AUROBINDO-AUR-APL-2023-009175

PATIENT
  Age: 29 Year
  Sex: Female

DRUGS (2)
  1. METHADONE [Suspect]
     Active Substance: METHADONE HYDROCHLORIDE
     Indication: Product used for unknown indication
     Dosage: UNK
     Route: 065
  2. HEROIN [Suspect]
     Active Substance: DIAMORPHINE
     Indication: Product used for unknown indication
     Dosage: UNK
     Route: 065

REACTIONS (8)
  - Electrocardiogram QT prolonged [Fatal]
  - Seizure [Fatal]
  - Toxicity to various agents [Fatal]
  - Hyperreflexia [Fatal]
  - Metabolic acidosis [Fatal]
  - Leukocytosis [Fatal]
  - Clonus [Fatal]
  - Tremor [Fatal]
